FAERS Safety Report 8394983-5 (Version None)
Quarter: 2012Q2

REPORT INFORMATION
  Report Type: 
  Country: None (occurrence: None)
  Receive Date: 20120530
  Receipt Date: 20120327
  Transmission Date: 20120825
  Serious: No
  Sender: FDA-Public Use
  Company Number: US-GLAXOSMITHKLINE-A0972199A

PATIENT
  Age: 55 Year
  Sex: Female

DRUGS (2)
  1. FLOLAN [Suspect]
     Indication: COR PULMONALE CHRONIC
     Dosage: 19NGKM UNKNOWN
     Route: 042
     Dates: start: 19990927
  2. REVATIO [Concomitant]
     Dosage: 20MG THREE TIMES PER DAY

REACTIONS (4)
  - INFECTION [None]
  - HEADACHE [None]
  - PAIN IN JAW [None]
  - DIARRHOEA [None]
